FAERS Safety Report 16682209 (Version 1)
Quarter: 2019Q3

REPORT INFORMATION
  Report Type: Spontaneous
  Country: BR (occurrence: BR)
  Receive Date: 20190808
  Receipt Date: 20190808
  Transmission Date: 20191004
  Serious: Yes (Hospitalization, Other)
  Sender: FDA-Public Use
  Company Number: BR-SA-2019SA148361

PATIENT
  Sex: Male
  Weight: 98 kg

DRUGS (3)
  1. TOUJEO [Suspect]
     Active Substance: INSULIN GLARGINE
     Indication: DIABETES MELLITUS
     Dosage: 30 IU, QD
     Route: 065
     Dates: start: 20190731
  2. TOUJEO [Suspect]
     Active Substance: INSULIN GLARGINE
     Dosage: 20 IU, QD
     Route: 065
  3. METFORMIN HYDROCHLORIDE. [Concomitant]
     Active Substance: METFORMIN HYDROCHLORIDE
     Dosage: UNK
     Route: 065

REACTIONS (15)
  - Foreign body in gastrointestinal tract [Unknown]
  - Haematemesis [Unknown]
  - Hypoglycaemia [Unknown]
  - Weight decreased [Unknown]
  - Discoloured vomit [Unknown]
  - Dizziness [Unknown]
  - Yellow skin [Unknown]
  - Blood glucose increased [Unknown]
  - Muscular weakness [Unknown]
  - Product storage error [Unknown]
  - Dysstasia [Unknown]
  - Blindness [Unknown]
  - Eye colour change [Unknown]
  - Nasopharyngitis [Recovered/Resolved]
  - Blood glucose increased [Unknown]

NARRATIVE: CASE EVENT DATE: 20190721
